FAERS Safety Report 6498291-9 (Version None)
Quarter: 2009Q4

REPORT INFORMATION
  Report Type: 
  Country: None (occurrence: None)
  Receive Date: 20091215
  Receipt Date: 20091204
  Transmission Date: 20100525
  Serious: Yes (Other)
  Sender: FDA-Public Use
  Company Number: JP-PFIZER INC-2009293206

PATIENT
  Age: 73 Year
  Sex: Male

DRUGS (5)
  1. XALATAN [Suspect]
     Indication: GLAUCOMA
     Dosage: UNK
     Dates: start: 20061017
  2. KETAS [Suspect]
     Indication: HYPERSENSITIVITY
     Route: 047
  3. PATANOL [Suspect]
     Indication: HYPERSENSITIVITY
     Route: 047
  4. MEVALOTIN [Concomitant]
     Route: 048
  5. BUFFERIN [Concomitant]
     Route: 048

REACTIONS (2)
  - COUGH [None]
  - MUSCULOSKELETAL CHEST PAIN [None]
